FAERS Safety Report 16157341 (Version 2)
Quarter: 2019Q3

REPORT INFORMATION
  Report Type: Spontaneous
  Country: US (occurrence: US)
  Receive Date: 20190404
  Receipt Date: 20190703
  Transmission Date: 20191004
  Serious: Yes (Life-Threatening, Disabling, Other)
  Sender: FDA-Public Use
  Company Number: US-PFIZER INC-2019133554

PATIENT
  Age: 62 Year
  Sex: Male

DRUGS (2)
  1. LYRICA [Suspect]
     Active Substance: PREGABALIN
     Indication: PAIN
     Dosage: 100 MG, 2X/DAY
     Route: 048
     Dates: start: 20190302
  2. IBUPROFEN. [Concomitant]
     Active Substance: IBUPROFEN
     Dosage: UNK

REACTIONS (17)
  - Coordination abnormal [Unknown]
  - Mobility decreased [Unknown]
  - Angioedema [Recovered/Resolved]
  - Dementia [Unknown]
  - Loss of personal independence in daily activities [Unknown]
  - Abdominal pain [Unknown]
  - Pharyngeal oedema [Unknown]
  - Amnesia [Recovered/Resolved]
  - Myalgia [Recovered/Resolved]
  - Swollen tongue [Unknown]
  - Fall [Unknown]
  - Gait disturbance [Unknown]
  - Lip swelling [Unknown]
  - Swelling face [Unknown]
  - Drug hypersensitivity [Unknown]
  - Eye swelling [Unknown]
  - Vision blurred [Recovered/Resolved]
